FAERS Safety Report 15280671 (Version 1)
Quarter: 2018Q3

REPORT INFORMATION
  Report Type: Spontaneous
  Country: CA (occurrence: CA)
  Receive Date: 20180815
  Receipt Date: 20180815
  Transmission Date: 20181010
  Serious: Yes (Hospitalization, Other)
  Sender: FDA-Public Use
  Company Number: CA-JNJFOC-20180804552

PATIENT
  Sex: Male

DRUGS (5)
  1. FLUCONAZOLE. [Suspect]
     Active Substance: FLUCONAZOLE
     Indication: HIV INFECTION
     Dosage: 200 MG, 1X/DAY
     Route: 048
  2. RITONAVIR W/TIPRANAVIR [Interacting]
     Active Substance: RITONAVIR\TIPRANAVIR
     Indication: HIV INFECTION
     Dosage: UNKNOWN, 2X/DAY
     Route: 048
  3. ETRAVIRINE [Interacting]
     Active Substance: ETRAVIRINE
     Indication: HIV INFECTION
     Dosage: 300 MG, 4X/DAY
     Route: 048
  4. DOLUTEGRAVIR [Interacting]
     Active Substance: DOLUTEGRAVIR
     Indication: HIV INFECTION
     Dosage: 100 MG, 4X/DAY
     Route: 048
  5. LAMIVUDINE. [Interacting]
     Active Substance: LAMIVUDINE
     Indication: HIV INFECTION
     Dosage: 300 MG, 4X/DAY
     Route: 048

REACTIONS (11)
  - Mycobacterial infection [Unknown]
  - Viraemia [Unknown]
  - Gastrointestinal disorder [Unknown]
  - Malabsorption [Unknown]
  - Drug resistance [Unknown]
  - Off label use [Unknown]
  - Viral load increased [Unknown]
  - CD4 lymphocytes decreased [Unknown]
  - Cytomegalovirus chorioretinitis [Unknown]
  - Drug interaction [Unknown]
  - Opportunistic infection [Unknown]
